FAERS Safety Report 14749660 (Version 1)
Quarter: 2018Q2

REPORT INFORMATION
  Report Type: Report from Study
  Country: None (occurrence: US)
  Receive Date: 20180411
  Receipt Date: 20180411
  Transmission Date: 20180711
  Serious: Yes (Other)
  Sender: FDA-Public Use
  Company Number: US-ABBVIE-17K-163-2189191-00

PATIENT
  Age: 53 Year
  Sex: Female

DRUGS (1)
  1. HUMIRA [Suspect]
     Active Substance: ADALIMUMAB
     Indication: CROHN^S DISEASE
     Route: 058

REACTIONS (15)
  - Allergy to animal [Unknown]
  - Sleep apnoea syndrome [Unknown]
  - Depression [Unknown]
  - Blood potassium decreased [Unknown]
  - Laryngitis [Not Recovered/Not Resolved]
  - Amnesia [Unknown]
  - Hypertension [Not Recovered/Not Resolved]
  - Blood magnesium decreased [Unknown]
  - Abdominal distension [Unknown]
  - Feeling of despair [Unknown]
  - Chronic kidney disease [Unknown]
  - Vocal cord thickening [Unknown]
  - Cardiac disorder [Unknown]
  - Blood sodium decreased [Unknown]
  - Vomiting [Unknown]

NARRATIVE: CASE EVENT DATE: 2017
